FAERS Safety Report 5278805-7 (Version None)
Quarter: 2007Q1

REPORT INFORMATION
  Report Type: 
  Country: None (occurrence: None)
  Receive Date: 20061208
  Receipt Date: 20060706
  Transmission Date: 20070707
  Serious: Yes (Hospitalization, Disabling, Other)
  Sender: FDA-Public Use
  Company Number: USA-2005-0021463

PATIENT
  Sex: Female

DRUGS (20)
  1. OXYCONTIN [Suspect]
  2. PERCOCET [Concomitant]
  3. NORTRIPTYLINE HCL [Concomitant]
  4. NEXIUM [Concomitant]
  5. MYLANTA [Concomitant]
  6. PREMARIN [Concomitant]
  7. CRESTOR [Concomitant]
  8. HYDROCHLOROTHIAZIDE [Concomitant]
  9. SOMA [Concomitant]
  10. ELAVIL [Concomitant]
  11. ROXICET [Concomitant]
  12. VITAMIN E [Concomitant]
  13. VITAMIN CAP [Concomitant]
  14. CHROMIUM PICOLINATE [Concomitant]
  15. PREMPRO [Concomitant]
  16. VANCENASE [Concomitant]
  17. SULINDAC [Concomitant]
  18. RISPERDAL [Concomitant]
  19. ZANAFLEX [Concomitant]
  20. FLEXERIL [Concomitant]

REACTIONS (27)
  - ANXIETY [None]
  - AREFLEXIA [None]
  - BACK PAIN [None]
  - DELUSIONAL DISORDER, UNSPECIFIED TYPE [None]
  - DEPRESSION [None]
  - DRUG DEPENDENCE [None]
  - DRUG WITHDRAWAL SYNDROME [None]
  - DYSPHAGIA [None]
  - GAIT DISTURBANCE [None]
  - GASTROOESOPHAGEAL REFLUX DISEASE [None]
  - INADEQUATE ANALGESIA [None]
  - INTENTIONAL DRUG MISUSE [None]
  - NAUSEA [None]
  - OBSESSIVE-COMPULSIVE DISORDER [None]
  - PAIN [None]
  - PAIN IN EXTREMITY [None]
  - PARAESTHESIA [None]
  - PARANOIA [None]
  - RADICULAR PAIN [None]
  - ROAD TRAFFIC ACCIDENT [None]
  - SCIATICA [None]
  - SENSORY LOSS [None]
  - SLEEP APNOEA SYNDROME [None]
  - SLEEP DISORDER [None]
  - VOMITING [None]
  - WEIGHT FLUCTUATION [None]
  - WEIGHT INCREASED [None]
